FAERS Safety Report 7954628-2 (Version None)
Quarter: 2011Q4

REPORT INFORMATION
  Report Type: 
  Country: None (occurrence: None)
  Receive Date: 20111202
  Receipt Date: 20111129
  Transmission Date: 20120403
  Serious: No
  Sender: FDA-Public Use
  Company Number: PHEH2011US010540

PATIENT
  Sex: Male

DRUGS (1)
  1. TASIGNA [Suspect]
     Dosage: 200 MG, BID
     Route: 048
     Dates: start: 20111101

REACTIONS (4)
  - DIARRHOEA [None]
  - NAUSEA [None]
  - INCORRECT DOSE ADMINISTERED [None]
  - RASH [None]
